FAERS Safety Report 15132014 (Version 1)
Quarter: 2018Q3

REPORT INFORMATION
  Report Type: Spontaneous
  Country: US (occurrence: US)
  Receive Date: 20180711
  Receipt Date: 20180711
  Transmission Date: 20181010
  Serious: No
  Sender: FDA-Public Use
  Company Number: US-GALDERMA-US17010166

PATIENT
  Age: 33 Year
  Sex: Female

DRUGS (5)
  1. DIFFERIN GEL [Suspect]
     Active Substance: ADAPALENE
     Indication: ACNE
     Dosage: 0.1%
     Route: 061
     Dates: start: 201703
  2. CHARCOAL NOSE STRIPS [Concomitant]
     Indication: PRODUCT USED FOR UNKNOWN INDICATION
  3. MUD MASK [Concomitant]
     Indication: PRODUCT USED FOR UNKNOWN INDICATION
  4. NOXZEMA [Concomitant]
     Active Substance: SALICYLIC ACID
     Indication: PRODUCT USED FOR UNKNOWN INDICATION
  5. BIORE WARMING BLACKHEAD ERASER [Concomitant]
     Indication: PRODUCT USED FOR UNKNOWN INDICATION

REACTIONS (2)
  - Drug ineffective [Not Recovered/Not Resolved]
  - Acne [Not Recovered/Not Resolved]
